FAERS Safety Report 18670694 (Version 4)
Quarter: 2021Q4

REPORT INFORMATION
  Report Type: Report from Study
  Country: JP (occurrence: JP)
  Receive Date: 20201228
  Receipt Date: 20211217
  Transmission Date: 20220303
  Serious: Yes (Death)
  Sender: FDA-Public Use
  Company Number: JP-MERCK HEALTHCARE KGAA-9209227

PATIENT
  Age: 69 Year
  Sex: Male
  Weight: 58 kg

DRUGS (13)
  1. BAVENCIO [Suspect]
     Active Substance: AVELUMAB
     Indication: Metastatic renal cell carcinoma
     Route: 042
     Dates: start: 20200817
  2. BAVENCIO [Suspect]
     Active Substance: AVELUMAB
     Route: 042
     Dates: start: 20201214, end: 20210524
  3. INLYTA [Suspect]
     Active Substance: AXITINIB
     Indication: Metastatic renal cell carcinoma
     Dates: start: 20200817, end: 20200831
  4. INLYTA [Suspect]
     Active Substance: AXITINIB
     Dosage: DOSE REDUCED
     Dates: start: 20200902, end: 20200917
  5. INLYTA [Suspect]
     Active Substance: AXITINIB
     Dates: start: 20200922, end: 20200923
  6. INLYTA [Suspect]
     Active Substance: AXITINIB
     Dates: start: 20200924, end: 20201012
  7. INLYTA [Suspect]
     Active Substance: AXITINIB
     Dates: start: 20201102, end: 20201109
  8. INLYTA [Suspect]
     Active Substance: AXITINIB
     Dates: start: 20201109, end: 20201228
  9. INLYTA [Suspect]
     Active Substance: AXITINIB
     Dates: start: 20201229, end: 20210606
  10. ACETAMINOPHEN [Concomitant]
     Active Substance: ACETAMINOPHEN
     Indication: Premedication
     Route: 048
     Dates: start: 20200817, end: 20201102
  11. ACETAMINOPHEN [Concomitant]
     Active Substance: ACETAMINOPHEN
     Route: 048
     Dates: start: 20201116, end: 20210524
  12. DIPHENHYDRAMINE [Concomitant]
     Active Substance: DIPHENHYDRAMINE
     Indication: Premedication
     Route: 048
     Dates: start: 20200817, end: 20201102
  13. DIPHENHYDRAMINE [Concomitant]
     Active Substance: DIPHENHYDRAMINE
     Route: 048
     Dates: start: 20201116, end: 20210524

REACTIONS (1)
  - Disease progression [Fatal]

NARRATIVE: CASE EVENT DATE: 20201214
